APPROVED DRUG PRODUCT: AMMONIUM LACTATE
Active Ingredient: AMMONIUM LACTATE
Strength: EQ 12% BASE
Dosage Form/Route: LOTION;TOPICAL
Application: A076216 | Product #001 | TE Code: AB
Applicant: SUN PHARMA CANADA INC
Approved: May 28, 2004 | RLD: No | RS: No | Type: RX